FAERS Safety Report 8374555-9 (Version None)
Quarter: 2012Q2

REPORT INFORMATION
  Report Type: 
  Country: None (occurrence: None)
  Receive Date: 20120521
  Receipt Date: 20120508
  Transmission Date: 20120825
  Serious: Yes (Other)
  Sender: FDA-Public Use
  Company Number: CA-JNJFOC-20120508569

PATIENT
  Sex: Female
  Weight: 86 kg

DRUGS (9)
  1. REMICADE [Suspect]
     Route: 042
     Dates: start: 20120508
  2. ASACOL [Concomitant]
     Route: 065
  3. REMICADE [Suspect]
     Indication: CROHN'S DISEASE
     Route: 042
     Dates: start: 20100715
  4. CLARITIN [Concomitant]
     Route: 065
  5. REMICADE [Suspect]
     Route: 042
     Dates: start: 20120508
  6. PERINDOPRIL ERBUMINE [Concomitant]
     Route: 065
  7. TYLENOL W/ CODEINE NO. 3 [Concomitant]
     Route: 065
  8. REMICADE [Suspect]
     Indication: ANKYLOSING SPONDYLITIS
     Route: 042
     Dates: start: 20100715
  9. PANTOPRAZOLE SODIUM [Concomitant]
     Route: 065

REACTIONS (4)
  - MUSCULOSKELETAL DISORDER [None]
  - HEART RATE INCREASED [None]
  - HYPERTENSION [None]
  - ROAD TRAFFIC ACCIDENT [None]
